FAERS Safety Report 25153067 (Version 1)
Quarter: 2025Q2

REPORT INFORMATION
  Report Type: Spontaneous
  Country: CN (occurrence: CN)
  Receive Date: 20250403
  Receipt Date: 20250403
  Transmission Date: 20250717
  Serious: Yes (Death, Other)
  Sender: CHEPLAPHARM
  Company Number: CN-ROCHE-3102661

PATIENT
  Age: 72 Year
  Sex: Female
  Weight: 47 kg

DRUGS (26)
  1. CAPECITABINE [Suspect]
     Active Substance: CAPECITABINE
     Indication: Rectal cancer
     Route: 048
     Dates: start: 201705, end: 201709
  2. CAPECITABINE [Suspect]
     Active Substance: CAPECITABINE
     Indication: Rectal cancer
     Route: 048
     Dates: start: 2020
  3. CAPECITABINE [Suspect]
     Active Substance: CAPECITABINE
     Indication: Rectal cancer
     Route: 048
     Dates: start: 20201106
  4. CAPECITABINE [Suspect]
     Active Substance: CAPECITABINE
     Indication: Rectal cancer
     Route: 048
     Dates: start: 20201128
  5. AVASTIN [Suspect]
     Active Substance: BEVACIZUMAB
     Indication: Rectal cancer
     Dates: start: 20191103, end: 20200224
  6. AVASTIN [Suspect]
     Active Substance: BEVACIZUMAB
     Indication: Rectal cancer
     Dates: start: 20210107
  7. OXALIPLATIN [Suspect]
     Active Substance: OXALIPLATIN
     Indication: Rectal cancer
     Dates: start: 201705, end: 201709
  8. OXALIPLATIN [Suspect]
     Active Substance: OXALIPLATIN
     Indication: Rectal cancer
     Dates: start: 20191103
  9. OXALIPLATIN [Suspect]
     Active Substance: OXALIPLATIN
     Indication: Rectal cancer
     Dates: end: 20200224
  10. LEUCOVORIN CALCIUM [Suspect]
     Active Substance: LEUCOVORIN CALCIUM
     Indication: Rectal cancer
     Dates: start: 20191103, end: 20200224
  11. LEUCOVORIN CALCIUM [Suspect]
     Active Substance: LEUCOVORIN CALCIUM
     Indication: Rectal cancer
     Dates: start: 20200331
  12. LEUCOVORIN CALCIUM [Suspect]
     Active Substance: LEUCOVORIN CALCIUM
     Indication: Rectal cancer
     Dates: start: 20200428
  13. LEUCOVORIN CALCIUM [Suspect]
     Active Substance: LEUCOVORIN CALCIUM
     Indication: Rectal cancer
     Dates: start: 20200526
  14. FLUOROURACIL [Suspect]
     Active Substance: FLUOROURACIL
     Indication: Rectal cancer
     Route: 042
     Dates: start: 20191103, end: 20200224
  15. FLUOROURACIL [Suspect]
     Active Substance: FLUOROURACIL
     Indication: Rectal cancer
     Route: 042
     Dates: start: 20200331
  16. FLUOROURACIL [Suspect]
     Active Substance: FLUOROURACIL
     Indication: Rectal cancer
     Route: 042
     Dates: start: 20200428
  17. FLUOROURACIL [Suspect]
     Active Substance: FLUOROURACIL
     Indication: Rectal cancer
     Route: 042
     Dates: start: 20200526
  18. CETUXIMAB [Suspect]
     Active Substance: CETUXIMAB
     Indication: Rectal cancer
     Dates: start: 20200331
  19. CETUXIMAB [Suspect]
     Active Substance: CETUXIMAB
     Indication: Rectal cancer
     Dates: start: 20200428
  20. CETUXIMAB [Suspect]
     Active Substance: CETUXIMAB
     Indication: Rectal cancer
     Dates: start: 20200526
  21. CETUXIMAB [Suspect]
     Active Substance: CETUXIMAB
     Indication: Rectal cancer
     Dates: start: 20201106
  22. IRINOTECAN [Suspect]
     Active Substance: IRINOTECAN
     Indication: Rectal cancer
     Dates: start: 20200331
  23. IRINOTECAN [Suspect]
     Active Substance: IRINOTECAN
     Indication: Rectal cancer
     Dates: start: 20200428
  24. IRINOTECAN [Suspect]
     Active Substance: IRINOTECAN
     Indication: Rectal cancer
     Dates: start: 20200526
  25. IRINOTECAN [Suspect]
     Active Substance: IRINOTECAN
     Indication: Rectal cancer
     Dates: start: 20201106
  26. SINTILIMAB [Suspect]
     Active Substance: SINTILIMAB
     Indication: Rectal cancer
     Route: 042
     Dates: start: 20210108

REACTIONS (18)
  - Gastrointestinal disorder [Recovering/Resolving]
  - Immune-mediated myocarditis [Unknown]
  - Disease progression [Fatal]
  - Platelet count decreased [Unknown]
  - Asthenia [Unknown]
  - Neutrophil count decreased [Unknown]
  - White blood cell count decreased [Unknown]
  - Rash [Unknown]
  - Back pain [Unknown]
  - Coronary artery disease [Unknown]
  - Myocardial infarction [Unknown]
  - Hypertension [Unknown]
  - Hepatitis [Unknown]
  - Hepatic cirrhosis [Unknown]
  - Ascites [Unknown]
  - Pneumonia fungal [Unknown]
  - Abdominal infection [Unknown]
  - Hypoalbuminaemia [Unknown]

NARRATIVE: CASE EVENT DATE: 20191016
